FAERS Safety Report 10356439 (Version 2)
Quarter: 2014Q3

REPORT INFORMATION
  Report Type: Report from Study
  Country: IT (occurrence: IT)
  Receive Date: 20140801
  Receipt Date: 20140912
  Transmission Date: 20150326
  Serious: Yes (Hospitalization)
  Sender: FDA-Public Use
  Company Number: IT-ROCHE-1443225

PATIENT

DRUGS (3)
  1. CARBOPLATIN. [Suspect]
     Active Substance: CARBOPLATIN
     Indication: OVARIAN CANCER
     Dosage: MOST RECENT DOSE RECEIVED ON 07/JUL/2014, TEMPORARILY SUSPENDED
     Route: 065
     Dates: start: 20140310
  2. BEVACIZUMAB [Suspect]
     Active Substance: BEVACIZUMAB
     Indication: OVARIAN CANCER
     Dosage: MOST RECENT DOSE RECEIVED ON 07/JUL/2014, TEMPORARILY SUSPENDED
     Route: 065
     Dates: start: 20140310
  3. PACLITAXEL. [Suspect]
     Active Substance: PACLITAXEL
     Indication: OVARIAN CANCER
     Dosage: MOST RECENT DOSE RECEIVED ON 07/JUL/2014, TEMPORARILY SUSPENDED
     Route: 065
     Dates: start: 20140310

REACTIONS (2)
  - Intestinal perforation [Recovered/Resolved with Sequelae]
  - Disease progression [Recovered/Resolved with Sequelae]

NARRATIVE: CASE EVENT DATE: 20140726
